FAERS Safety Report 6098580-6 (Version None)
Quarter: 2009Q1

REPORT INFORMATION
  Report Type: 
  Country: None (occurrence: None)
  Receive Date: 20090302
  Receipt Date: 20090219
  Transmission Date: 20090719
  Serious: Yes (Other)
  Sender: FDA-Public Use
  Company Number: US-JNJFOC-20081104536

PATIENT
  Sex: Male
  Weight: 78.93 kg

DRUGS (21)
  1. REMICADE [Suspect]
     Route: 042
  2. REMICADE [Suspect]
     Route: 042
  3. REMICADE [Suspect]
     Route: 042
  4. REMICADE [Suspect]
     Route: 042
  5. REMICADE [Suspect]
     Route: 042
  6. REMICADE [Suspect]
     Route: 042
  7. REMICADE [Suspect]
     Indication: RHEUMATOID ARTHRITIS
     Route: 042
  8. CLARITIN [Concomitant]
     Indication: PREMEDICATION
     Route: 048
  9. ACETAMINOPHEN [Concomitant]
     Indication: PREMEDICATION
     Route: 048
  10. ZOCOR [Concomitant]
     Dosage: STARTED BEFORE NOV-2006
  11. ZETIA [Concomitant]
     Dosage: STARTED BEFORE NOV-2006
  12. PREDNISONE [Concomitant]
     Dosage: 10 TO 4 MG DAILY, STARTED BEFORE NOV-2006
  13. RESTORIX [Concomitant]
  14. METHOTREXATE [Concomitant]
  15. FOLATE [Concomitant]
     Dosage: STARTED BEFORE NOV-2006
  16. ZYRTEC [Concomitant]
  17. AMBIEN [Concomitant]
  18. FLEXERIL [Concomitant]
  19. FLOMAX [Concomitant]
  20. CELEBREX [Concomitant]
     Dosage: STARTED BEFORE NOV-2006
  21. PROTONIX [Concomitant]
     Dosage: STARTED BEFORE NOV-2006

REACTIONS (1)
  - PROSTATE CANCER [None]
